FAERS Safety Report 23180764 (Version 2)
Quarter: 2023Q4

REPORT INFORMATION
  Report Type: Spontaneous
  Country: US (occurrence: US)
  Receive Date: 20231114
  Receipt Date: 20231117
  Transmission Date: 20240110
  Serious: Yes (Other)
  Sender: FDA-Public Use
  Company Number: US-GENERA-00000410

PATIENT
  Age: 58 Year
  Sex: Female

DRUGS (16)
  1. NEURONTIN [Suspect]
     Active Substance: GABAPENTIN
     Indication: Generalised anxiety disorder
     Dosage: 600 MG IN THE MORNING AND 1200 MG HS
     Route: 065
  2. NEURONTIN [Suspect]
     Active Substance: GABAPENTIN
     Dosage: 1200 MILLIGRAM, TID
     Route: 048
  3. SEROQUEL [Suspect]
     Active Substance: QUETIAPINE FUMARATE
     Indication: Generalised anxiety disorder
     Dosage: 100 MG IN THE MORNING AND 400 MG HS
     Route: 065
  4. SEROQUEL [Suspect]
     Active Substance: QUETIAPINE FUMARATE
     Indication: Bipolar disorder
     Dosage: 100 MILLIGRAM, TID
     Route: 048
  5. SEROQUEL [Suspect]
     Active Substance: QUETIAPINE FUMARATE
     Indication: Panic disorder
     Dosage: 200 MILLIGRAM (AT BED TIME)
     Route: 048
  6. LITHIUM CARBONATE [Concomitant]
     Active Substance: LITHIUM CARBONATE
     Indication: Generalised anxiety disorder
     Dosage: 900 MILLIGRAM, QD (AT BEDTIME.)
     Route: 065
  7. LITHIUM CARBONATE [Concomitant]
     Active Substance: LITHIUM CARBONATE
     Indication: Bipolar disorder
  8. TIMOLOL MALEATE [Concomitant]
     Active Substance: TIMOLOL MALEATE
     Indication: Anxiety
     Dosage: 10 MILLIGRAM, BID
     Route: 065
  9. TIMOLOL MALEATE [Concomitant]
     Active Substance: TIMOLOL MALEATE
     Indication: Generalised anxiety disorder
     Dosage: 20 MILLIGRAM, TID
     Route: 048
  10. DIAZEPAM [Concomitant]
     Active Substance: DIAZEPAM
     Indication: Anxiety
     Dosage: 10 MILLIGRAM (AS NEEDED, BUT NOT TO EXCEED TWO TABLETS DAILY.)
     Route: 048
  11. DIAZEPAM [Concomitant]
     Active Substance: DIAZEPAM
     Indication: Generalised anxiety disorder
     Dosage: 10 MILLIGRAM, TID
     Route: 065
  12. DIAZEPAM [Concomitant]
     Active Substance: DIAZEPAM
     Indication: Panic disorder
     Dosage: 20 MILLIGRAM
     Route: 065
  13. DIAZEPAM [Concomitant]
     Active Substance: DIAZEPAM
     Indication: Insomnia
  14. CLONAZEPAM [Concomitant]
     Active Substance: CLONAZEPAM
     Indication: Generalised anxiety disorder
     Dosage: 4 MILLIGRAM (AT BEDTIME, AS NEEDED.)
     Route: 065
  15. CLONAZEPAM [Concomitant]
     Active Substance: CLONAZEPAM
     Indication: Panic disorder
     Dosage: 4 MILLIGRAM, TID
     Route: 065
  16. CLONAZEPAM [Concomitant]
     Active Substance: CLONAZEPAM
     Indication: Insomnia

REACTIONS (6)
  - Akathisia [Recovering/Resolving]
  - Drug withdrawal syndrome [Recovering/Resolving]
  - Treatment noncompliance [Unknown]
  - Product dose omission in error [Unknown]
  - Intentional product misuse [Unknown]
  - Anxiety [Recovered/Resolved]
